FAERS Safety Report 8589212-3 (Version None)
Quarter: 2012Q3

REPORT INFORMATION
  Report Type: 
  Country: None (occurrence: None)
  Receive Date: 20120813
  Receipt Date: 20120806
  Transmission Date: 20120928
  Serious: Yes (Hospitalization)
  Sender: FDA-Public Use
  Company Number: US-JNJFOC-20120804264

PATIENT
  Sex: Male

DRUGS (2)
  1. INFLIXIMAB, RECOMBINANT [Suspect]
     Indication: PRODUCT USED FOR UNKNOWN INDICATION
     Route: 042
  2. INFLIXIMAB, RECOMBINANT [Suspect]
     Route: 042

REACTIONS (2)
  - THROMBOPHLEBITIS [None]
  - PULMONARY EMBOLISM [None]
